FAERS Safety Report 8740175 (Version 2)
Quarter: 2012Q4

REPORT INFORMATION
  Report Type: 
  Country: US (occurrence: US)
  Receive Date: 20120823
  Receipt Date: 20121010
  Transmission Date: 20130627
  Serious: No
  Sender: FDA-Public Use
  Company Number: US-009507513-1208USA001750

PATIENT
  Sex: Male
  Weight: 78.46 kg

DRUGS (3)
  1. PEGINTRON [Suspect]
     Indication: HEPATITIS C
     Dosage: 120 microgram/0.5 ml
     Route: 058
     Dates: start: 20120302, end: 20120821
  2. RIBAVIRIN [Concomitant]
     Dosage: 1200 mg, UNK
     Route: 048
     Dates: start: 20120302, end: 20120821
  3. TELAPREVIR [Concomitant]
     Dosage: 2250 mg, qd
     Route: 048
     Dates: start: 20120302, end: 20120531

REACTIONS (2)
  - Hepatic enzyme abnormal [Unknown]
  - Incorrect dose administered [Unknown]
